FAERS Safety Report 18342709 (Version 1)
Quarter: 2020Q4

REPORT INFORMATION
  Report Type: Spontaneous
  Country: US (occurrence: US)
  Receive Date: 20201002
  Receipt Date: 20201002
  Transmission Date: 20210113
  Serious: Yes (Other)
  Sender: FDA-Public Use
  Company Number: None

PATIENT
  Age: 75 Year
  Sex: Male
  Weight: 94 kg

DRUGS (4)
  1. ELIGARD [Suspect]
     Active Substance: LEUPROLIDE ACETATE
     Indication: HORMONE-REFRACTORY PROSTATE CANCER
     Dates: start: 20140807
  2. ELIGARD [Suspect]
     Active Substance: LEUPROLIDE ACETATE
     Indication: PROSTATE CANCER STAGE III
     Dates: start: 20140807
  3. ENZALUTAMIDE (ENZALUTAMIDE 40MG CAP, ORAL) [Suspect]
     Active Substance: ENZALUTAMIDE
     Indication: HORMONE-REFRACTORY PROSTATE CANCER
     Dates: start: 20180430
  4. ENZALUTAMIDE (ENZALUTAMIDE 40MG CAP, ORAL) [Suspect]
     Active Substance: ENZALUTAMIDE
     Indication: PROSTATE CANCER STAGE III
     Dates: start: 20180430

REACTIONS (5)
  - Fatigue [None]
  - Fear [None]
  - Depression [None]
  - Anxiety [None]
  - Affect lability [None]

NARRATIVE: CASE EVENT DATE: 20200623
